FAERS Safety Report 12404896 (Version 1)
Quarter: 2016Q2

REPORT INFORMATION
  Report Type: Spontaneous
  Country: ES (occurrence: ES)
  Receive Date: 20160525
  Receipt Date: 20160525
  Transmission Date: 20160815
  Serious: Yes (Hospitalization, Other)
  Sender: FDA-Public Use
  Company Number: ES-BRISTOL-MYERS SQUIBB COMPANY-BMS-2016-038695

PATIENT
  Age: 84 Year
  Sex: Male

DRUGS (1)
  1. HYDREA [Suspect]
     Active Substance: HYDROXYUREA
     Indication: POLYCYTHAEMIA VERA
     Dosage: 500 MG, QD
     Route: 048
     Dates: start: 20150323, end: 20150419

REACTIONS (7)
  - Chills [Recovering/Resolving]
  - Discomfort [Recovering/Resolving]
  - Hyponatraemia [Recovering/Resolving]
  - Pyrexia [Recovered/Resolved]
  - Gouty arthritis [Recovering/Resolving]
  - Renal impairment [Recovering/Resolving]
  - Bacteriuria [Recovering/Resolving]

NARRATIVE: CASE EVENT DATE: 20150419
